FAERS Safety Report 7229043-X (Version None)
Quarter: 2011Q1

REPORT INFORMATION
  Report Type: 
  Country: None (occurrence: None)
  Receive Date: 20110117
  Receipt Date: 20110111
  Transmission Date: 20110831
  Serious: Yes (Death, Other)
  Sender: FDA-Public Use
  Company Number: PHHY2009US66588

PATIENT
  Sex: Male
  Weight: 68.9 kg

DRUGS (5)
  1. ZOLOFT [Concomitant]
     Indication: DEPRESSION
     Route: 048
  2. LASIX [Concomitant]
     Indication: CARDIAC VALVE DISEASE
     Route: 048
  3. POTASSIUM CHLORIDE [Concomitant]
     Indication: CARDIAC VALVE DISEASE
  4. METOPROLOL [Concomitant]
     Indication: CARDIAC VALVE DISEASE
  5. EXJADE [Suspect]
     Indication: IRON OVERLOAD
     Dosage: 1500 MG, DAILY
     Route: 048
     Dates: start: 20080923, end: 20090602

REACTIONS (7)
  - THROMBOCYTOPENIA [None]
  - DIARRHOEA [None]
  - NEOPLASM MALIGNANT [None]
  - FREQUENT BOWEL MOVEMENTS [None]
  - DRY MOUTH [None]
  - SUBDURAL HAEMATOMA [None]
  - FALL [None]
